FAERS Safety Report 8331048-2 (Version None)
Quarter: 2012Q2

REPORT INFORMATION
  Report Type: 
  Country: None (occurrence: None)
  Receive Date: 20120502
  Receipt Date: 20120409
  Transmission Date: 20120825
  Serious: No
  Sender: FDA-Public Use
  Company Number: US-AMGEN-USASP2012022343

PATIENT
  Sex: Female

DRUGS (1)
  1. ENBREL [Suspect]
     Indication: PSORIASIS
     Dosage: 50 MG, QWK
     Dates: start: 20090406, end: 20120301

REACTIONS (7)
  - DIZZINESS [None]
  - PSORIASIS [None]
  - OEDEMA PERIPHERAL [None]
  - INJECTION SITE PAIN [None]
  - HYPOAESTHESIA [None]
  - THERAPEUTIC RESPONSE DECREASED [None]
  - INJECTION SITE DISCOLOURATION [None]
